FAERS Safety Report 5801473-X (Version None)
Quarter: 2008Q3

REPORT INFORMATION
  Report Type: 
  Country: None (occurrence: None)
  Receive Date: 20080707
  Receipt Date: 20080630
  Transmission Date: 20090109
  Serious: Yes (Hospitalization, Other)
  Sender: FDA-Public Use
  Company Number: GB-TEVA-171871ISR

PATIENT
  Age: 63 Year
  Sex: Male
  Weight: 76 kg

DRUGS (2)
  1. SIMVASTATIN [Suspect]
     Indication: HYPERCHOLESTEROLAEMIA
     Route: 048
     Dates: start: 20080314, end: 20080509
  2. SIMVASTATIN [Suspect]
     Dates: start: 20080617

REACTIONS (5)
  - ABDOMINAL PAIN [None]
  - AORTIC ANEURYSM [None]
  - DIARRHOEA [None]
  - TENDERNESS [None]
  - VOMITING [None]
